FAERS Safety Report 5713110-3 (Version None)
Quarter: 2008Q2

REPORT INFORMATION
  Report Type: 
  Country: None (occurrence: None)
  Receive Date: 20080422
  Receipt Date: 20080421
  Transmission Date: 20081010
  Serious: Yes (Hospitalization)
  Sender: FDA-Public Use
  Company Number: LV-SANOFI-SYNTHELABO-A01200804053

PATIENT
  Age: 67 Year
  Sex: Male

DRUGS (6)
  1. ZOFISTAR [Concomitant]
     Indication: HYPERTENSION
     Route: 048
     Dates: start: 20030101
  2. METFORAL [Concomitant]
     Indication: DIABETES MELLITUS
     Route: 048
     Dates: start: 20020101
  3. PLAVIX [Suspect]
     Indication: ANGIOPLASTY
     Route: 048
     Dates: start: 20070907, end: 20080310
  4. LERKAPIN [Concomitant]
     Indication: HYPERTENSION
     Dosage: ^PERIODIC^
     Route: 048
  5. TRIFAS [Concomitant]
     Indication: HYPERTENSION
     Route: 048
     Dates: start: 20030101
  6. BETALOC ZOK [Concomitant]
     Indication: HYPERTENSION
     Route: 048
     Dates: start: 20030101

REACTIONS (3)
  - SPEECH DISORDER [None]
  - TREMOR [None]
  - VERTIGO [None]
